FAERS Safety Report 11501979 (Version 1)
Quarter: 2015Q3

REPORT INFORMATION
  Report Type: Spontaneous
  Country: IT (occurrence: IT)
  Receive Date: 20150914
  Receipt Date: 20150914
  Transmission Date: 20151125
  Serious: Yes (Other)
  Sender: FDA-Public Use
  Company Number: IT-ASTRAZENECA-2015SE87341

PATIENT
  Age: 24714 Day
  Sex: Female
  Weight: 60 kg

DRUGS (6)
  1. CRESTOR [Suspect]
     Active Substance: ROSUVASTATIN CALCIUM
     Indication: DYSLIPIDAEMIA
     Route: 048
     Dates: end: 20100331
  2. ARIMIDEX [Concomitant]
     Active Substance: ANASTROZOLE
     Route: 048
  3. XANAX [Concomitant]
     Active Substance: ALPRAZOLAM
     Route: 048
  4. SOLOSA (GLIMEPIRIDE) [Concomitant]
     Indication: TYPE 2 DIABETES MELLITUS
     Route: 048
  5. UNIPRIL [Concomitant]
     Active Substance: RAMIPRIL
     Route: 048
  6. NORVASC [Concomitant]
     Active Substance: AMLODIPINE BESYLATE
     Indication: HYPERTENSION
     Route: 048

REACTIONS (2)
  - Herpes zoster [Recovered/Resolved]
  - Skin exfoliation [Recovered/Resolved]

NARRATIVE: CASE EVENT DATE: 20100331
